FAERS Safety Report 20868389 (Version 1)
Quarter: 2022Q2

REPORT INFORMATION
  Report Type: Spontaneous
  Country: US (occurrence: None)
  Receive Date: 20220524
  Receipt Date: 20220524
  Transmission Date: 20220721
  Serious: Yes (Other)
  Sender: FDA-Public Use
  Company Number: None

PATIENT
  Age: 40 Year
  Sex: Female

DRUGS (1)
  1. SUBOXONE [Suspect]
     Active Substance: BUPRENORPHINE HYDROCHLORIDE\NALOXONE HYDROCHLORIDE
     Indication: Drug use disorder
     Dosage: OTHER QUANTITY : 1 TABLET(S);?
     Route: 060
     Dates: start: 20210810

REACTIONS (4)
  - Tooth discolouration [None]
  - Tooth loss [None]
  - Tooth fracture [None]
  - Dental caries [None]

NARRATIVE: CASE EVENT DATE: 20211001
